FAERS Safety Report 10513782 (Version 1)
Quarter: 2014Q4

REPORT INFORMATION
  Report Type: Spontaneous
  Country: US (occurrence: US)
  Receive Date: 20141013
  Receipt Date: 20141013
  Transmission Date: 20150528
  Serious: Yes (Other)
  Sender: FDA-Public Use
  Company Number: US-PFIZER INC-2014280166

PATIENT
  Age: 59 Year
  Sex: Female
  Weight: 66.67 kg

DRUGS (1)
  1. GABAPENTIN. [Suspect]
     Active Substance: GABAPENTIN
     Dosage: UNK
     Dates: start: 2013, end: 2013

REACTIONS (2)
  - Abasia [Unknown]
  - Fluid retention [Unknown]

NARRATIVE: CASE EVENT DATE: 2013
